FAERS Safety Report 15830339 (Version 1)
Quarter: 2019Q1

REPORT INFORMATION
  Report Type: Spontaneous
  Country: US (occurrence: US)
  Receive Date: 20190115
  Receipt Date: 20190115
  Transmission Date: 20190417
  Serious: No
  Sender: FDA-Public Use
  Company Number: US-REGENERON PHARMACEUTICALS, INC.-2018-39046

PATIENT

DRUGS (7)
  1. EYLEA [Suspect]
     Active Substance: AFLIBERCEPT
     Dosage: 2 MG/0.05 ML, AS INDICATED, LEFT EYE
     Route: 031
     Dates: start: 20180821, end: 20180821
  2. REFRESH TEARS [Concomitant]
     Active Substance: CARBOXYMETHYLCELLULOSE SODIUM
     Indication: DRY EYE
     Route: 031
  3. EYLEA [Suspect]
     Active Substance: AFLIBERCEPT
     Dosage: 2 MG/0.05 ML, 8 INJECTIONS A YEAR, RIGHT EYE
     Route: 031
  4. REFRESH P.M. [Concomitant]
     Active Substance: MINERAL OIL\PETROLATUM
     Indication: DRY EYE
  5. EYLEA [Suspect]
     Active Substance: AFLIBERCEPT
     Dosage: 2 MG/0.05 ML, AS INDICATED, LAST DOSE PRIOR EVENTS, RIGHT EYE
     Route: 031
     Dates: start: 20180711, end: 20180711
  6. EYLEA [Suspect]
     Active Substance: AFLIBERCEPT
     Dosage: 2 MG/0.05 ML, AS INDICATED, LAST DOSE PRIOR EVENTS, LEFT EYE
     Route: 031
     Dates: start: 201807, end: 201807
  7. EYLEA [Suspect]
     Active Substance: AFLIBERCEPT
     Indication: NEOVASCULAR AGE-RELATED MACULAR DEGENERATION
     Dosage: 2 MG/0.05 ML, EVERY MONTH/Q6 WEEKS LEFT EYE
     Route: 031
     Dates: start: 20130719

REACTIONS (5)
  - Eye irritation [Recovered/Resolved]
  - Eye laser surgery [Unknown]
  - Eye pain [Unknown]
  - Intraocular pressure increased [Unknown]
  - Dry eye [Unknown]

NARRATIVE: CASE EVENT DATE: 20180824
